FAERS Safety Report 23604807 (Version 1)
Quarter: 2024Q1

REPORT INFORMATION
  Report Type: Spontaneous
  Country: US (occurrence: US)
  Receive Date: 20240307
  Receipt Date: 20240307
  Transmission Date: 20240410
  Serious: Yes (Other)
  Sender: FDA-Public Use
  Company Number: US-APOTEX-2024AP003106

PATIENT
  Age: 6 Year
  Sex: Male

DRUGS (2)
  1. CEFUROXIME [Suspect]
     Active Substance: CEFUROXIME
     Indication: Staphylococcal infection
     Dosage: UNK
     Route: 065
  2. RUXOLITINIB [Concomitant]
     Active Substance: RUXOLITINIB
     Indication: Inflammatory bowel disease
     Dosage: UNK
     Route: 065

REACTIONS (2)
  - Hepatotoxicity [Unknown]
  - Hypertransaminasaemia [Unknown]
